FAERS Safety Report 5383996-3 (Version None)
Quarter: 2007Q3

REPORT INFORMATION
  Report Type: 
  Country: None (occurrence: None)
  Receive Date: 20070711
  Receipt Date: 20070704
  Transmission Date: 20080115
  Serious: Yes (Hospitalization, Other)
  Sender: FDA-Public Use
  Company Number: GB-SHR-GB-2007-021242

PATIENT
  Age: 32 Year
  Sex: Female
  Weight: 64 kg

DRUGS (5)
  1. MIRENA [Suspect]
     Indication: MENORRHAGIA
     Dosage: 20 A?G/DAY, CONT
     Route: 015
     Dates: start: 20040217
  2. AMITRIPTYLINE HCL [Concomitant]
     Indication: BACK PAIN
     Dosage: 10 MG, 1X/DAY
     Route: 048
     Dates: start: 20040601, end: 20040701
  3. CETIRIZINE HCL [Concomitant]
     Dosage: 10 MG, 1X/DAY
     Route: 048
     Dates: start: 20040628, end: 20040701
  4. DIAZEPAM [Concomitant]
     Dosage: 2 MG, 3X/DAY
     Route: 048
     Dates: start: 20040801
  5. DICLOFENAC [Concomitant]
     Indication: BACK PAIN
     Dosage: 50 MG, 3X/DAY
     Route: 048
     Dates: start: 20040828, end: 20040901

REACTIONS (3)
  - BACK DISORDER [None]
  - DEEP VEIN THROMBOSIS [None]
  - IMMOBILE [None]
